FAERS Safety Report 20832128 (Version 1)
Quarter: 2022Q2

REPORT INFORMATION
  Report Type: 
  Country: None (occurrence: None)
  Receive Date: 20220516
  Receipt Date: 20220516
  Transmission Date: 20220721
  Serious: No
  Sender: FDA-Public Use
  Company Number: NO-ROCHE-3076366

PATIENT

DRUGS (1)
  1. RITUXIMAB [Suspect]
     Active Substance: RITUXIMAB
     Dosage: DATE OF LAST DOSE PRIOR TO EVENT: 17/MAR/2022, 07/APR/2022
     Dates: end: 20220317

REACTIONS (2)
  - Dermatitis exfoliative generalised [None]
  - Adverse drug reaction [None]

NARRATIVE: CASE EVENT DATE: 20220329
